FAERS Safety Report 7315431-X (Version None)
Quarter: 2011Q1

REPORT INFORMATION
  Report Type: 
  Country: None (occurrence: None)
  Receive Date: 20110225
  Receipt Date: 20110218
  Transmission Date: 20110831
  Serious: Yes (Other)
  Sender: FDA-Public Use
  Company Number: B0698130A

PATIENT
  Sex: Female
  Weight: 61 kg

DRUGS (23)
  1. TYKERB [Suspect]
     Indication: BREAST CANCER
     Dosage: 1250MG PER DAY
     Route: 048
     Dates: start: 20090917, end: 20100715
  2. AZUNOL [Concomitant]
     Indication: ERYTHEMA
     Dates: start: 20091009, end: 20091021
  3. ALLELOCK [Concomitant]
     Indication: URTICARIA
     Dates: start: 20100128, end: 20100804
  4. TRASTUZUMAB [Concomitant]
     Indication: BREAST CANCER
     Dosage: 120MG PER DAY
     Route: 048
  5. BETAMETHASONE [Concomitant]
     Route: 062
     Dates: start: 20091105, end: 20100715
  6. XELODA [Suspect]
     Dosage: 2400MG PER DAY
     Route: 048
  7. ZOMETA [Concomitant]
     Indication: BREAST CANCER
     Dosage: 4MG PER DAY
     Route: 042
  8. RIBOFLAVIN TAB [Concomitant]
     Route: 048
     Dates: start: 20091105, end: 20100715
  9. HIRUDOID [Concomitant]
     Dates: start: 20091022, end: 20100325
  10. MINOMYCIN [Concomitant]
     Indication: RASH
     Dates: start: 20091119, end: 20100303
  11. ACUATIM [Concomitant]
     Indication: RASH
     Dates: start: 20091119, end: 20100603
  12. DRENISON [Concomitant]
     Indication: PAPULE
     Dates: start: 20100325, end: 20100603
  13. NEO-MEDROL [Concomitant]
     Indication: ERYTHEMA
     Dates: start: 20091022, end: 20100127
  14. LOCOID [Concomitant]
     Indication: PAPULE
     Dates: start: 20100325, end: 20100325
  15. LOPEMIN [Concomitant]
     Indication: PROPHYLAXIS
     Route: 048
     Dates: start: 20090917, end: 20091105
  16. HIRUDOID [Concomitant]
     Indication: PRURITUS
     Dates: start: 20100520, end: 20100603
  17. GENTACIN [Concomitant]
     Route: 062
     Dates: start: 20091105, end: 20100520
  18. HYDROCORTISONE BUTYRATE PROPIONATE [Concomitant]
     Dates: start: 20091022, end: 20100325
  19. ALESION [Concomitant]
     Indication: URTICARIA
     Dates: start: 20100108, end: 20100127
  20. PYDOXAL [Concomitant]
     Indication: PROPHYLAXIS
     Route: 048
     Dates: start: 20090917, end: 20100715
  21. HACHIAZULE [Concomitant]
     Dates: start: 20091009, end: 20091021
  22. LOCOID [Concomitant]
     Indication: RASH
     Dates: start: 20091022, end: 20091216
  23. MYSER [Concomitant]
     Indication: PRURITUS

REACTIONS (1)
  - SEBORRHOEIC DERMATITIS [None]
